FAERS Safety Report 19267091 (Version 1)
Quarter: 2021Q2

REPORT INFORMATION
  Report Type: Spontaneous
  Country: US (occurrence: US)
  Receive Date: 20210517
  Receipt Date: 20210517
  Transmission Date: 20210717
  Serious: Yes (Other)
  Sender: FDA-Public Use
  Company Number: US-ASTRAZENECA-2021A435461

PATIENT
  Weight: 83.9 kg

DRUGS (7)
  1. PRILOSEC [Suspect]
     Active Substance: OMEPRAZOLE MAGNESIUM
     Indication: PRODUCT USED FOR UNKNOWN INDICATION
     Dosage: 40 MG40.0MG UNKNOWN
     Route: 048
     Dates: start: 2009, end: 20191118
  2. NEXIUM 24HR [Suspect]
     Active Substance: ESOMEPRAZOLE MAGNESIUM
     Indication: GASTROOESOPHAGEAL REFLUX DISEASE
     Dosage: 20 MG20.0MG UNKNOWN
     Route: 048
     Dates: start: 2014, end: 2016
  3. OMEPRAZOLE. [Suspect]
     Active Substance: OMEPRAZOLE
     Indication: GASTROOESOPHAGEAL REFLUX DISEASE
     Dosage: 40 MG GENERIC40.0MG UNKNOWN
     Route: 065
     Dates: start: 2010
  4. PREVACID 24 HR [Suspect]
     Active Substance: LANSOPRAZOLE
     Indication: GASTROOESOPHAGEAL REFLUX DISEASE
     Dosage: 15 MG15.0MG UNKNOWN
     Route: 065
     Dates: start: 200901, end: 201407
  5. PRILOSEC [Suspect]
     Active Substance: OMEPRAZOLE MAGNESIUM
     Indication: PRODUCT USED FOR UNKNOWN INDICATION
     Dosage: 40 MG QD GENERIC40.0MG UNKNOWN
     Route: 048
     Dates: start: 20100124, end: 20201119
  6. PRILOSEC [Suspect]
     Active Substance: OMEPRAZOLE MAGNESIUM
     Indication: GASTROOESOPHAGEAL REFLUX DISEASE
     Dosage: 40 MG QD GENERIC40.0MG UNKNOWN
     Route: 048
     Dates: start: 20100124, end: 20201119
  7. PRILOSEC [Suspect]
     Active Substance: OMEPRAZOLE MAGNESIUM
     Indication: GASTROOESOPHAGEAL REFLUX DISEASE
     Dosage: 40 MG40.0MG UNKNOWN
     Route: 048
     Dates: start: 2009, end: 20191118

REACTIONS (5)
  - Chronic kidney disease [Not Recovered/Not Resolved]
  - Hypertensive nephropathy [Unknown]
  - Acute kidney injury [Unknown]
  - Renal failure [Unknown]
  - Renal impairment [Unknown]
